FAERS Safety Report 8931574 (Version 2)
Quarter: 2013Q1

REPORT INFORMATION
  Report Type: Report from Study
  Country: JP (occurrence: JP)
  Receive Date: 20121128
  Receipt Date: 20130108
  Transmission Date: 20140127
  Serious: Yes (Other)
  Sender: FDA-Public Use
  Company Number: JP-ACTELION-A-CH2012-74941

PATIENT
  Age: 27 Year
  Sex: Male

DRUGS (6)
  1. ACT-293987 [Suspect]
     Indication: PULMONARY ARTERIAL HYPERTENSION
     Dosage: 1000 ?G, BID
     Route: 048
  2. ACT-293987 [Suspect]
     Dosage: UNK
     Route: 048
     Dates: start: 20120614
  3. TRACLEER [Suspect]
     Indication: PULMONARY ARTERIAL HYPERTENSION
     Dosage: UNK
     Route: 048
     Dates: start: 20120105
  4. ADCIRCA [Concomitant]
     Dosage: UNK
     Dates: start: 20120112
  5. WARFARIN [Concomitant]
     Dosage: UNK
     Dates: start: 20111116
  6. LOXOPROFEN SODIUM [Concomitant]
     Dosage: UNK
     Dates: start: 20121102

REACTIONS (3)
  - Abortion missed [Unknown]
  - Uterine dilation and evacuation [Unknown]
  - Pregnancy of partner [Unknown]
